FAERS Safety Report 6620557-X (Version None)
Quarter: 2010Q1

REPORT INFORMATION
  Report Type: 
  Country: None (occurrence: None)
  Receive Date: 20100309
  Receipt Date: 20100304
  Transmission Date: 20100710
  Serious: Yes (Death, Hospitalization)
  Sender: FDA-Public Use
  Company Number: SE-EISAI INC.-E2090-01079-SPO-SE

PATIENT
  Age: 65 Year
  Sex: Male
  Weight: 100 kg

DRUGS (5)
  1. ZONEGRAN [Suspect]
     Indication: EPILEPSY
     Route: 048
     Dates: start: 20091010
  2. LAMOTRIGINE [Concomitant]
     Route: 048
     Dates: start: 20030417
  3. BEHEPAN VIT B 12 [Concomitant]
     Indication: VITAMIN B12
     Route: 048
     Dates: start: 19970512
  4. EMGESAN (MAGNESIA) [Concomitant]
     Route: 048
     Dates: start: 20060423, end: 20100116
  5. CLOZAPINE [Concomitant]
     Indication: PARANOIA
     Route: 048
     Dates: start: 20080915, end: 20100116

REACTIONS (2)
  - CEREBRAL ARTERY THROMBOSIS [None]
  - PNEUMONIA ASPIRATION [None]
